FAERS Safety Report 20351754 (Version 1)
Quarter: 2022Q1

REPORT INFORMATION
  Report Type: Spontaneous
  Country: US (occurrence: None)
  Receive Date: 20220119
  Receipt Date: 20220119
  Transmission Date: 20220424
  Serious: Yes (Hospitalization)
  Sender: FDA-Public Use
  Company Number: None

PATIENT
  Sex: Female

DRUGS (1)
  1. ILARIS [Suspect]
     Active Substance: CANAKINUMAB
     Indication: Juvenile idiopathic arthritis
     Dosage: INJECT 300 MG UNDER THE SKIN (SUBCUTANEOUS INJECTION) EVERY 4 WEEKS?
     Route: 058

REACTIONS (2)
  - Hospitalisation [None]
  - Condition aggravated [None]
